FAERS Safety Report 10338709 (Version 1)
Quarter: 2014Q3

REPORT INFORMATION
  Report Type: Spontaneous
  Country: DE (occurrence: None)
  Receive Date: 20140721
  Receipt Date: 20140721
  Transmission Date: 20150326
  Serious: Yes (Congenital Anomaly, Other)
  Sender: FDA-Public Use
  Company Number: AUR-APL-2014--7587

PATIENT
  Age: 24 Hour
  Sex: Female
  Weight: 1.9 kg

DRUGS (2)
  1. LEVETIRACETAM. [Suspect]
     Active Substance: LEVETIRACETAM
     Indication: EPILEPSY
     Route: 064
     Dates: start: 20130516, end: 20131228
  2. RHOPHYLAC (ANTI-D IMMUNOGLOBULIN) [Concomitant]

REACTIONS (9)
  - Patent ductus arteriosus [None]
  - Pericardial effusion [None]
  - Apnoea neonatal [None]
  - Premature baby [None]
  - Bradycardia neonatal [None]
  - Laryngomalacia [None]
  - Blood creatine phosphokinase MB increased [None]
  - Cyanosis neonatal [None]
  - Maternal drugs affecting foetus [None]

NARRATIVE: CASE EVENT DATE: 20131228
